FAERS Safety Report 20667132 (Version 1)
Quarter: 2022Q2

REPORT INFORMATION
  Report Type: Spontaneous
  Country: US (occurrence: US)
  Receive Date: 20220404
  Receipt Date: 20220404
  Transmission Date: 20220721
  Serious: No
  Sender: FDA-Public Use
  Company Number: US-drreddys-SPO/USA/22/0148261

PATIENT
  Age: 68 Year
  Sex: Female
  Weight: 78.3 kg

DRUGS (2)
  1. ZAFIRLUKAST [Suspect]
     Active Substance: ZAFIRLUKAST
     Indication: Asthma
     Dates: end: 202203
  2. ZAFIRLUKAST [Suspect]
     Active Substance: ZAFIRLUKAST
     Dates: end: 202203

REACTIONS (3)
  - Incorrect dose administered [Unknown]
  - Prescribed underdose [Unknown]
  - Product dose omission issue [Unknown]
